FAERS Safety Report 4846509-8 (Version None)
Quarter: 2005Q4

REPORT INFORMATION
  Report Type: 
  Country: None (occurrence: None)
  Receive Date: 20051206
  Receipt Date: 20051128
  Transmission Date: 20060501
  Serious: Yes (Other)
  Sender: FDA-Public Use
  Company Number: JP-AVENTIS-200513555JP

PATIENT
  Age: 66 Year
  Sex: Female

DRUGS (2)
  1. DAONIL [Suspect]
     Indication: DIABETES MELLITUS
     Dosage: DOSE: 1 TABLET
     Route: 048
     Dates: start: 20020701, end: 20020801
  2. UNKNOWN DRUG [Suspect]

REACTIONS (1)
  - INTERSTITIAL LUNG DISEASE [None]
